FAERS Safety Report 6997977-7 (Version None)
Quarter: 2010Q3

REPORT INFORMATION
  Report Type: 
  Country: None (occurrence: None)
  Receive Date: 20100920
  Receipt Date: 20100913
  Transmission Date: 20110219
  Serious: Yes (Death, Other)
  Sender: FDA-Public Use
  Company Number: JP-SANOFI-AVENTIS-2010SA022698

PATIENT
  Age: 59 Year
  Sex: Male

DRUGS (3)
  1. OXALIPLATIN [Suspect]
     Indication: RECTAL CANCER
     Route: 041
     Dates: start: 20100112, end: 20100112
  2. OXALIPLATIN [Suspect]
     Route: 041
     Dates: start: 20100413, end: 20100413
  3. XELODA [Concomitant]
     Indication: RECTAL CANCER
     Route: 048
     Dates: start: 20100112, end: 20100413

REACTIONS (4)
  - ACUTE RESPIRATORY DISTRESS SYNDROME [None]
  - ANAPHYLACTIC REACTION [None]
  - DYSPNOEA [None]
  - PNEUMONIA BACTERIAL [None]
